FAERS Safety Report 5591250-X (Version None)
Quarter: 2008Q1

REPORT INFORMATION
  Report Type: 
  Country: None (occurrence: None)
  Receive Date: 20080110
  Receipt Date: 20080110
  Transmission Date: 20080703
  Serious: Yes (Hospitalization, Other)
  Sender: FDA-Public Use
  Company Number: None

PATIENT
  Age: 50 Year
  Sex: Female
  Weight: 58.9676 kg

DRUGS (2)
  1. ACTONEL [Suspect]
     Indication: OSTEOPOROSIS
     Dosage: 1 PILL ONCE A WEEK PO
     Route: 048
     Dates: start: 20071205, end: 20080102
  2. AVALIDE [Suspect]
     Indication: HYPERTENSION
     Dosage: 1 PILL DAILY PO
     Route: 048
     Dates: start: 20070104

REACTIONS (8)
  - ABDOMINAL PAIN UPPER [None]
  - ARTHRALGIA [None]
  - BLOOD PRESSURE INCREASED [None]
  - CHEST PAIN [None]
  - DYSPEPSIA [None]
  - HEART RATE INCREASED [None]
  - MUSCULAR WEAKNESS [None]
  - PALPITATIONS [None]
